FAERS Safety Report 6506958-9 (Version None)
Quarter: 2009Q4

REPORT INFORMATION
  Report Type: 
  Country: None (occurrence: None)
  Receive Date: 20091221
  Receipt Date: 20091210
  Transmission Date: 20100525
  Serious: Yes (Other)
  Sender: FDA-Public Use
  Company Number: US-BAYER-200942483NA

PATIENT
  Age: 22 Year
  Sex: Female

DRUGS (1)
  1. MIRENA [Suspect]
     Indication: PREGNANCY
     Dosage: CONTINUOUS
     Route: 015
     Dates: start: 20091012, end: 20091014

REACTIONS (1)
  - UTERINE PERFORATION [None]
